FAERS Safety Report 5520261-5 (Version None)
Quarter: 2007Q4

REPORT INFORMATION
  Report Type: 
  Country: None (occurrence: None)
  Receive Date: 20071117
  Receipt Date: 20071109
  Transmission Date: 20080405
  Serious: Yes (Hospitalization, Other)
  Sender: FDA-Public Use
  Company Number: PHBS2007RU18343

PATIENT
  Age: 48 Year
  Sex: Female

DRUGS (3)
  1. PREDNISOLONE [Concomitant]
     Indication: SARCOIDOSIS
     Dosage: 6 TABLETS/DAY
  2. SANDIMMUNE [Suspect]
     Indication: RHEUMATOID ARTHRITIS
     Dosage: 200 MG, BID
     Dates: start: 20070429, end: 20070506
  3. SANDIMMUNE [Suspect]
     Dosage: 100 MG/DAY
     Dates: start: 20071024, end: 20071031

REACTIONS (6)
  - BLOOD PRESSURE INCREASED [None]
  - EYE LASER SURGERY [None]
  - EYE OEDEMA [None]
  - IRIDOCELE [None]
  - IRIS DISORDER [None]
  - VITRECTOMY [None]
